FAERS Safety Report 12469650 (Version 1)
Quarter: 2016Q2

REPORT INFORMATION
  Report Type: Spontaneous
  Country: KR (occurrence: KR)
  Receive Date: 20160615
  Receipt Date: 20160615
  Transmission Date: 20160815
  Serious: Yes (Other)
  Sender: FDA-Public Use
  Company Number: KR-BRISTOL-MYERS SQUIBB COMPANY-BMS-2016-046827

PATIENT
  Age: 19 Year
  Sex: Male

DRUGS (6)
  1. ARIPIPRAZOLE. [Suspect]
     Active Substance: ARIPIPRAZOLE
     Indication: BIPOLAR DISORDER
     Dosage: 5 MG, UNK
     Route: 065
  2. PALIPERIDONE. [Concomitant]
     Active Substance: PALIPERIDONE
     Indication: CONSTIPATION
     Route: 065
  3. LORAZEPAM. [Concomitant]
     Active Substance: LORAZEPAM
     Indication: MOVEMENT DISORDER
  4. PROPRANOLOL [Concomitant]
     Active Substance: PROPRANOLOL\PROPRANOLOL HYDROCHLORIDE
     Indication: SCHIZOPHRENIA
     Route: 065
  5. TRIHEXYPHENIDYL [Concomitant]
     Active Substance: TRIHEXYPHENIDYL
     Indication: SCHIZOPHRENIA
     Route: 065
  6. LORAZEPAM. [Concomitant]
     Active Substance: LORAZEPAM
     Indication: EXTRAPYRAMIDAL DISORDER
     Route: 065

REACTIONS (6)
  - Gynaecomastia [Unknown]
  - Prescribed underdose [Unknown]
  - Glaucomatous optic disc atrophy [Unknown]
  - Dry mouth [Unknown]
  - Weight increased [Unknown]
  - Schizophrenia [Unknown]
